FAERS Safety Report 22208130 (Version 1)
Quarter: 2023Q2

REPORT INFORMATION
  Report Type: Report from Study
  Country: ES (occurrence: ES)
  Receive Date: 20230413
  Receipt Date: 20230413
  Transmission Date: 20230722
  Serious: Yes (Other)
  Sender: FDA-Public Use
  Company Number: ES-UCBSA-2023017519

PATIENT

DRUGS (2)
  1. LACOSAMIDE [Suspect]
     Active Substance: LACOSAMIDE
     Indication: Epilepsy
     Dosage: 400 MG
  2. LACOSAMIDE [Suspect]
     Active Substance: LACOSAMIDE
     Dosage: 200 MG

REACTIONS (10)
  - Toxic encephalopathy [Unknown]
  - Somnolence [Unknown]
  - Coordination abnormal [Unknown]
  - Bradyphrenia [Unknown]
  - Memory impairment [Unknown]
  - Vision blurred [Unknown]
  - Diplopia [Unknown]
  - Apathy [Unknown]
  - Asthenia [Unknown]
  - Dizziness [Unknown]
